FAERS Safety Report 4893406-8 (Version None)
Quarter: 2006Q1

REPORT INFORMATION
  Report Type: 
  Country: None (occurrence: None)
  Receive Date: 20060125
  Receipt Date: 20060125
  Transmission Date: 20060701
  Serious: Yes (Death, Hospitalization, Other)
  Sender: FDA-Public Use
  Company Number: None

PATIENT
  Sex: Female
  Weight: 56.2 kg

DRUGS (4)
  1. CYCLOPHOSPHAMIDE [Suspect]
     Indication: ACUTE LYMPHOCYTIC LEUKAEMIA
     Dosage: SEE IMAGE
     Dates: start: 20051114, end: 20051212
  2. CYTARABINE [Suspect]
     Dosage: SEE IMAGE
     Dates: start: 20051114, end: 20051222
  3. MERCAPTOPURINE [Suspect]
     Dosage: SEE IMAGE
     Dates: start: 20051114, end: 20051224
  4. METHOTREXATE [Suspect]
     Dosage: SEE IMAGE
     Dates: start: 20051114, end: 20051206

REACTIONS (11)
  - BRAIN HERNIATION [None]
  - BRAIN OEDEMA [None]
  - CEREBELLAR INFARCTION [None]
  - EYE PAIN [None]
  - FEBRILE NEUTROPENIA [None]
  - HAEMORRHAGIC CEREBRAL INFARCTION [None]
  - HYDROCEPHALUS [None]
  - LOSS OF CONSCIOUSNESS [None]
  - PANCREATITIS [None]
  - PROCTALGIA [None]
  - REFUSAL OF TREATMENT BY RELATIVE [None]
